FAERS Safety Report 25907317 (Version 1)
Quarter: 2025Q4

REPORT INFORMATION
  Report Type: Spontaneous
  Country: US (occurrence: None)
  Receive Date: 20251010
  Receipt Date: 20251010
  Transmission Date: 20260117
  Serious: Yes (unspecified)
  Sender: FDA-CTU
  Company Number: None

PATIENT
  Age: 33 Year
  Sex: Female

DRUGS (3)
  1. VRAYLAR [Suspect]
     Active Substance: CARIPRAZINE
     Indication: Depression
     Dates: start: 20180415, end: 20250701
  2. ZOLOFT [Concomitant]
     Active Substance: SERTRALINE HYDROCHLORIDE
  3. ZEPBOUND [Concomitant]
     Active Substance: TIRZEPATIDE

REACTIONS (3)
  - Impulse-control disorder [None]
  - Gambling disorder [None]
  - Emotional distress [None]

NARRATIVE: CASE EVENT DATE: 20180501
